FAERS Safety Report 4867354-3 (Version None)
Quarter: 2005Q4

REPORT INFORMATION
  Report Type: 
  Country: None (occurrence: None)
  Receive Date: 20051222
  Receipt Date: 20051209
  Transmission Date: 20060501
  Serious: Yes (Hospitalization, Other)
  Sender: FDA-Public Use
  Company Number: 2005167603

PATIENT
  Sex: Male
  Weight: 49.4421 kg

DRUGS (1)
  1. FLAGYL [Suspect]
     Indication: AMOEBIASIS
     Dosage: 9X/DAY INTERVAL: DAILY, ORAL
     Route: 048
     Dates: start: 20030101

REACTIONS (8)
  - CANDIDIASIS [None]
  - DRUG PRESCRIBING ERROR [None]
  - DYSPEPSIA [None]
  - GASTRITIS [None]
  - GLOSSODYNIA [None]
  - IRRITABLE BOWEL SYNDROME [None]
  - OESOPHAGITIS [None]
  - WRONG TECHNIQUE IN DRUG USAGE PROCESS [None]
